FAERS Safety Report 9128848 (Version 1)
Quarter: 2013Q1

REPORT INFORMATION
  Report Type: Report from Study
  Country: CA (occurrence: CA)
  Receive Date: 20130228
  Receipt Date: 20130228
  Transmission Date: 20140127
  Serious: Yes (Other)
  Sender: FDA-Public Use
  Company Number: CA-ROCHE-1196241

PATIENT
  Age: 72 Year
  Sex: 0

DRUGS (5)
  1. AVASTIN [Suspect]
     Indication: COLORECTAL CANCER
     Route: 065
     Dates: start: 20110928, end: 20120528
  2. XELODA [Suspect]
     Indication: COLORECTAL CANCER
     Route: 065
     Dates: start: 20120707, end: 20130104
  3. FLUOROURACIL [Suspect]
     Indication: COLORECTAL CANCER
     Route: 065
     Dates: start: 20110928, end: 20120528
  4. IRINOTECAN [Suspect]
     Indication: COLORECTAL CANCER
     Route: 065
     Dates: start: 20110928, end: 20120528
  5. FOLINIC ACID [Suspect]
     Indication: COLORECTAL CANCER
     Route: 065
     Dates: start: 20110928, end: 20120528

REACTIONS (1)
  - Disease progression [Unknown]
